FAERS Safety Report 9912862 (Version 2)
Quarter: 2014Q2

REPORT INFORMATION
  Report Type: Spontaneous
  Country: US (occurrence: US)
  Receive Date: 20140220
  Receipt Date: 20140422
  Transmission Date: 20141212
  Serious: No
  Sender: FDA-Public Use
  Company Number: US-PFIZER INC-2014048772

PATIENT
  Age: 59 Year
  Sex: Female
  Weight: 97.05 kg

DRUGS (5)
  1. LYRICA [Suspect]
     Indication: FIBROMYALGIA
     Dosage: UNK
  2. TRAMADOL HYDROCHLORIDE [Interacting]
     Indication: FIBROMYALGIA
     Dosage: 50 MG, 4X/DAY
  3. CIMETIDINE [Interacting]
     Indication: GASTROOESOPHAGEAL REFLUX DISEASE
     Dosage: UNK
  4. CIMETIDINE [Interacting]
     Indication: ABDOMINAL DISCOMFORT
  5. LORTAB [Interacting]
     Indication: FIBROMYALGIA
     Dosage: UNK

REACTIONS (1)
  - Drug interaction [Unknown]
